FAERS Safety Report 9138283 (Version 1)
Quarter: 2013Q1

REPORT INFORMATION
  Report Type: Spontaneous
  Country: JP (occurrence: JP)
  Receive Date: 20130305
  Receipt Date: 20130305
  Transmission Date: 20140127
  Serious: Yes (Other)
  Sender: FDA-Public Use
  Company Number: JP-009507513-1303JPN000573

PATIENT
  Sex: 0

DRUGS (1)
  1. TEMODAL [Suspect]

REACTIONS (1)
  - Metastases to central nervous system [Unknown]
